FAERS Safety Report 12702901 (Version 1)
Quarter: 2016Q3

REPORT INFORMATION
  Report Type: Spontaneous
  Country: BE (occurrence: BE)
  Receive Date: 20160831
  Receipt Date: 20160831
  Transmission Date: 20161109
  Serious: Yes (Disabling, Other)
  Sender: FDA-Public Use
  Company Number: BE-PFIZER INC-2016401499

PATIENT
  Age: 69 Year
  Weight: 70 kg

DRUGS (7)
  1. LEDERTREXATE [Suspect]
     Active Substance: METHOTREXATE
     Indication: PSORIASIS
     Dosage: 12.5 MG, WEEKLY
     Route: 048
     Dates: start: 20160505, end: 20160805
  2. XARELTO [Concomitant]
     Active Substance: RIVAROXABAN
     Dosage: 20 MG, 1X/DAY
     Route: 048
     Dates: start: 20130301
  3. CO-LISINOPRIL [Concomitant]
     Active Substance: HYDROCHLOROTHIAZIDE\LISINOPRIL
     Dosage: 0.5 DF (20MG/12.5MG), 1X/DAY
     Route: 048
     Dates: start: 20130301
  4. LANSOPRAZOLE. [Concomitant]
     Active Substance: LANSOPRAZOLE
     Dosage: 15 MG, 1X/DAY
     Route: 048
     Dates: start: 19950101
  5. DERMOVATE [Suspect]
     Active Substance: CLOBETASOL
     Indication: PSORIASIS
     Dosage: 1 DF, 1X/DAY
     Route: 003
     Dates: start: 20160505, end: 20160812
  6. SOTALOL. [Concomitant]
     Active Substance: SOTALOL
     Dosage: 80 MG, 1X/DAY
     Route: 048
     Dates: start: 20130301
  7. QUATRAL [Concomitant]
     Dosage: 1 DF, DAILY
     Dates: start: 20050101

REACTIONS (3)
  - Retinal oedema [Unknown]
  - Blindness unilateral [Unknown]
  - Retinal artery embolism [Unknown]

NARRATIVE: CASE EVENT DATE: 20160807
